FAERS Safety Report 6074142-1 (Version None)
Quarter: 2009Q1

REPORT INFORMATION
  Report Type: 
  Country: None (occurrence: None)
  Receive Date: 20090211
  Receipt Date: 20090210
  Transmission Date: 20090719
  Serious: Yes (Other)
  Sender: FDA-Public Use
  Company Number: A0767607A

PATIENT
  Sex: Male

DRUGS (1)
  1. NICODERM CQ [Suspect]
     Indication: DRUG USE FOR UNKNOWN INDICATION
     Route: 062
     Dates: start: 20090208, end: 20090209

REACTIONS (7)
  - APPLICATION SITE ERYTHEMA [None]
  - COGNITIVE DISORDER [None]
  - HALLUCINATION, VISUAL [None]
  - MEMORY IMPAIRMENT [None]
  - TERMINAL INSOMNIA [None]
  - THINKING ABNORMAL [None]
  - VOMITING [None]
